FAERS Safety Report 6071739-X (Version None)
Quarter: 2009Q1

REPORT INFORMATION
  Report Type: 
  Country: None (occurrence: None)
  Receive Date: 20090209
  Receipt Date: 20090209
  Transmission Date: 20090719
  Serious: No
  Sender: FDA-Public Use
  Company Number: None

PATIENT
  Age: 67 Year
  Sex: Male
  Weight: 78.0187 kg

DRUGS (2)
  1. ARICEPT [Suspect]
     Indication: DEMENTIA ALZHEIMER'S TYPE
     Dosage: 10 MG ONCE/DAY ORAL
     Route: 048
     Dates: start: 20080301
  2. FLOMAX [Concomitant]

REACTIONS (4)
  - DIZZINESS POSTURAL [None]
  - HEART RATE DECREASED [None]
  - HYPOTENSION [None]
  - SINUS ARREST [None]
